FAERS Safety Report 4815293-6 (Version None)
Quarter: 2005Q4

REPORT INFORMATION
  Report Type: 
  Country: None (occurrence: None)
  Receive Date: 20051028
  Receipt Date: 20051020
  Transmission Date: 20060501
  Serious: Yes (Hospitalization)
  Sender: FDA-Public Use
  Company Number: US-MERCK-0510USA08049

PATIENT
  Age: 49 Year
  Sex: Female
  Weight: 114 kg

DRUGS (5)
  1. SINGULAIR [Suspect]
     Indication: CHRONIC OBSTRUCTIVE PULMONARY DISEASE
     Route: 048
     Dates: start: 20050101, end: 20050101
  2. [THERAPY UNSPECIFIED] [Concomitant]
     Route: 065
  3. XOPENEX [Concomitant]
     Route: 065
  4. ADVAIR DISKUS 100/50 [Concomitant]
     Route: 065
  5. ATROVENT [Concomitant]
     Route: 065

REACTIONS (1)
  - HEPATIC FAILURE [None]
